FAERS Safety Report 6212158-2 (Version None)
Quarter: 2009Q2

REPORT INFORMATION
  Report Type: 
  Country: None (occurrence: None)
  Receive Date: 20090602
  Receipt Date: 20090520
  Transmission Date: 20091009
  Serious: Yes (Other)
  Sender: FDA-Public Use
  Company Number: GB-BAUSCH-2009BL002447

PATIENT
  Age: 37 Year
  Sex: Female

DRUGS (1)
  1. MINIMS PROXYMETACAINE 0.5% [Suspect]
     Indication: ANAESTHESIA
     Route: 047
     Dates: start: 20090519, end: 20090519

REACTIONS (3)
  - CONVULSION [None]
  - DIZZINESS [None]
  - VOMITING [None]
